FAERS Safety Report 17716476 (Version 1)
Quarter: 2020Q2

REPORT INFORMATION
  Report Type: Spontaneous
  Country: FR (occurrence: FR)
  Receive Date: 20200428
  Receipt Date: 20200428
  Transmission Date: 20200714
  Serious: Yes (Death, Other)
  Sender: FDA-Public Use
  Company Number: FR-AXELLIA-003112

PATIENT
  Age: 76 Year
  Sex: Female
  Weight: 82.4 kg

DRUGS (14)
  1. MACROGOL 3350 [Concomitant]
     Active Substance: POLYETHYLENE GLYCOL 3350
     Route: 048
     Dates: start: 20191029, end: 20191105
  2. INSULIN PORCINE [Concomitant]
     Active Substance: INSULIN PORK\INSULIN PURIFIED PORK
     Route: 058
     Dates: start: 20191029, end: 20191105
  3. PAROXETINE. [Concomitant]
     Active Substance: PAROXETINE
     Route: 048
     Dates: start: 20191029, end: 20191105
  4. ACEBUTOLOL [Concomitant]
     Active Substance: ACEBUTOLOL
     Route: 048
     Dates: start: 20191029, end: 20191105
  5. RILMENIDINE/RILMENIDINE PHOSPHATE [Concomitant]
     Active Substance: RILMENIDINE
     Route: 048
     Dates: start: 20191029, end: 20191105
  6. FLAGYL [Concomitant]
     Active Substance: METRONIDAZOLE\METRONIDAZOLE HYDROCHLORIDE
     Route: 048
     Dates: start: 20191024, end: 20191029
  7. ENOXAPARIN [Concomitant]
     Active Substance: ENOXAPARIN
     Route: 058
     Dates: start: 20191029, end: 20191105
  8. SODIUM PHOSPHATE [Concomitant]
     Active Substance: SODIUM PHOSPHATE
     Route: 054
     Dates: start: 20191029, end: 20191105
  9. SODIUM PHOSPHATE [Concomitant]
     Active Substance: SODIUM PHOSPHATE
     Route: 054
     Dates: start: 20191029, end: 20191105
  10. MORPHINE [Concomitant]
     Active Substance: MORPHINE
     Route: 042
     Dates: start: 20191029, end: 20191105
  11. DAPTOMYCIN. [Suspect]
     Active Substance: DAPTOMYCIN
     Indication: SEPSIS
     Route: 041
     Dates: start: 20191029, end: 20191105
  12. CEFTAZIDIME/CEFTAZIDIME PENTAHYDRATE [Suspect]
     Active Substance: CEFTAZIDIME
     Indication: SEPSIS
     Route: 042
     Dates: start: 20191029, end: 20191105
  13. POTASSIUM [Concomitant]
     Active Substance: POTASSIUM
     Route: 054
     Dates: start: 20191029, end: 20191105
  14. SODIUM BICARBONATE. [Concomitant]
     Active Substance: SODIUM BICARBONATE
     Route: 054
     Dates: start: 20191029, end: 20191105

REACTIONS (1)
  - Cholestasis [Not Recovered/Not Resolved]

NARRATIVE: CASE EVENT DATE: 20191104
